FAERS Safety Report 5473564-7 (Version None)
Quarter: 2007Q4

REPORT INFORMATION
  Report Type: 
  Country: None (occurrence: None)
  Receive Date: 20071001
  Receipt Date: 20050223
  Transmission Date: 20080405
  Serious: Yes (Death)
  Sender: FDA-Public Use
  Company Number: US-PFIZER INC-2005024781

PATIENT
  Age: 10 Year
  Sex: Female
  Weight: 22 kg

DRUGS (2)
  1. UNASYN [Suspect]
     Indication: TYMPANIC MEMBRANE PERFORATION
     Route: 042
     Dates: start: 20041203, end: 20041210
  2. UNASYN [Suspect]
     Indication: OTITIS MEDIA

REACTIONS (1)
  - DEATH [None]
